FAERS Safety Report 8167987-5 (Version None)
Quarter: 2012Q1

REPORT INFORMATION
  Report Type: 
  Country: None (occurrence: None)
  Receive Date: 20120227
  Receipt Date: 20120216
  Transmission Date: 20120608
  Serious: Yes (Hospitalization)
  Sender: FDA-Public Use
  Company Number: FR-GLAXOSMITHKLINE-B0783379A

PATIENT
  Sex: Female

DRUGS (7)
  1. NABUMETONE [Suspect]
     Indication: BACK PAIN
     Dosage: 1G TWICE PER DAY
     Route: 048
     Dates: start: 20111229, end: 20120109
  2. FIXICAL [Concomitant]
     Route: 048
  3. PANTOPRAZOLE [Concomitant]
     Route: 048
  4. ALPRAZOLAM [Concomitant]
     Route: 048
  5. ESBERIVEN [Concomitant]
     Route: 048
  6. FUROSEMIDE [Concomitant]
     Route: 048
  7. PRAVASTATIN [Concomitant]
     Route: 048

REACTIONS (1)
  - ERYTHEMA [None]
